FAERS Safety Report 5551393-3 (Version None)
Quarter: 2007Q4

REPORT INFORMATION
  Report Type: 
  Country: None (occurrence: None)
  Receive Date: 20071212
  Receipt Date: 20070529
  Transmission Date: 20080405
  Serious: No
  Sender: FDA-Public Use
  Company Number: US-AMGEN-KDL227025

PATIENT
  Sex: Female

DRUGS (1)
  1. ENBREL [Suspect]
     Indication: RHEUMATOID ARTHRITIS
     Dates: start: 20070514

REACTIONS (4)
  - DYSPNOEA [None]
  - PARAESTHESIA ORAL [None]
  - RASH PRURITIC [None]
  - SWOLLEN TONGUE [None]
